FAERS Safety Report 6011919-2 (Version None)
Quarter: 2008Q4

REPORT INFORMATION
  Report Type: 
  Country: None (occurrence: None)
  Receive Date: 20081218
  Receipt Date: 20081002
  Transmission Date: 20090506
  Serious: No
  Sender: FDA-Public Use
  Company Number: US-ASTRAZENECA-2008UW21547

PATIENT
  Age: 74 Year
  Sex: Female
  Weight: 50.3 kg

DRUGS (5)
  1. CRESTOR [Suspect]
     Indication: BLOOD CHOLESTEROL INCREASED
     Route: 048
  2. NORVASC [Concomitant]
  3. XANAX [Concomitant]
  4. TOPROL-XL [Concomitant]
     Route: 048
  5. PRILOSEC [Concomitant]
     Route: 048

REACTIONS (5)
  - CONSTIPATION [None]
  - DIZZINESS [None]
  - NAUSEA [None]
  - OEDEMA PERIPHERAL [None]
  - PARATHYROID DISORDER [None]
